FAERS Safety Report 4436680-4 (Version None)
Quarter: 2004Q3

REPORT INFORMATION
  Report Type: 
  Country: None (occurrence: None)
  Receive Date: 20040728
  Receipt Date: 20040312
  Transmission Date: 20050211
  Serious: No
  Sender: FDA-Public Use
  Company Number: 205247

PATIENT
  Age: 71 Year
  Sex: Male
  Weight: 90.7 kg

DRUGS (1)
  1. RITUXAN [Suspect]
     Indication: NON-HODGKIN'S LYMPHOMA
     Dosage: 780  MG, INTRAVENOUS
     Route: 042
     Dates: start: 20040311

REACTIONS (4)
  - CORNEAL OEDEMA [None]
  - DYSPNOEA [None]
  - EYE REDNESS [None]
  - HYPOTENSION [None]
